FAERS Safety Report 14996357 (Version 3)
Quarter: 2020Q4

REPORT INFORMATION
  Report Type: Report from Study
  Country: KR (occurrence: KR)
  Receive Date: 20180611
  Receipt Date: 20201026
  Transmission Date: 20210113
  Serious: Yes (Hospitalization)
  Sender: FDA-Public Use
  Company Number: KR-ROCHE-2133455

PATIENT
  Age: 60 Year
  Sex: Female
  Weight: 57.12 kg

DRUGS (5)
  1. MTIG 7192A [Suspect]
     Active Substance: TIRAGOLUMAB
     Indication: NON-SMALL CELL LUNG CANCER
     Dosage: DATE OF MOST RECENT DOSE OF MTIG7192A (ANTI-TIGIT MAB) PRIOR TO AE ONSET: 30 MG ON 10/JAN/2018 AT 11
     Route: 042
     Dates: start: 20170105
  2. REGORAFENIB. [Concomitant]
     Active Substance: REGORAFENIB
     Indication: NEOPLASM MALIGNANT
     Dates: start: 20190402
  3. ATEZOLIZUMAB. [Suspect]
     Active Substance: ATEZOLIZUMAB
     Indication: NON-SMALL CELL LUNG CANCER
     Dosage: DATE OF MOST RECENT DOSE OF ATEZOLIZUMAB PRIOR TO AE ONSET: 1200 MG ON 10/JAN/2018 AT 12:20 PM TO 12
     Route: 042
     Dates: start: 20170411
  4. BEVACIZUMAB. [Concomitant]
     Active Substance: BEVACIZUMAB
     Indication: NEOPLASM MALIGNANT
     Dates: start: 20180207, end: 20181123
  5. CAPECITABINE. [Concomitant]
     Active Substance: CAPECITABINE
     Indication: NEOPLASM MALIGNANT
     Route: 048
     Dates: start: 20180207, end: 20181123

REACTIONS (2)
  - Diabetic ketoacidosis [Recovered/Resolved]
  - Diabetes mellitus [Not Recovered/Not Resolved]

NARRATIVE: CASE EVENT DATE: 20180424
